FAERS Safety Report 6047796-3 (Version None)
Quarter: 2009Q1

REPORT INFORMATION
  Report Type: 
  Country: None (occurrence: None)
  Receive Date: 20090123
  Receipt Date: 20090114
  Transmission Date: 20090719
  Serious: Yes (Other)
  Sender: FDA-Public Use
  Company Number: US-AMGEN-QUU325910

PATIENT
  Sex: Female
  Weight: 95.3 kg

DRUGS (1)
  1. ENBREL [Suspect]
     Indication: PSORIASIS
     Route: 058
     Dates: start: 20041101

REACTIONS (2)
  - PHOTOSENSITIVITY REACTION [None]
  - RETINAL DETACHMENT [None]
